FAERS Safety Report 5126062-4 (Version None)
Quarter: 2006Q4

REPORT INFORMATION
  Report Type: 
  Country: None (occurrence: None)
  Receive Date: 20061012
  Receipt Date: 20061002
  Transmission Date: 20070319
  Serious: Yes (Hospitalization)
  Sender: FDA-Public Use
  Company Number: US-ROCHE-465818

PATIENT
  Age: 65 Year
  Sex: Male
  Weight: 104.3 kg

DRUGS (1)
  1. BONIVA [Suspect]
     Indication: OSTEOPOROSIS
     Dosage: DOSAGE REGIMEN: MONTHLY
     Route: 048
     Dates: start: 20060503, end: 20060503

REACTIONS (3)
  - BILE DUCT OBSTRUCTION [None]
  - DIARRHOEA [None]
  - JAUNDICE [None]
